FAERS Safety Report 8400776-2 (Version None)
Quarter: 2012Q2

REPORT INFORMATION
  Report Type: 
  Country: None (occurrence: None)
  Receive Date: 20120531
  Receipt Date: 20110629
  Transmission Date: 20120825
  Serious: No
  Sender: FDA-Public Use
  Company Number: US-NOVEN-11US002736

PATIENT
  Sex: Male
  Weight: 68.027 kg

DRUGS (3)
  1. DAYTRANA [Suspect]
     Indication: AUTISM
     Dosage: 20 MG, QD
     Route: 062
     Dates: start: 20110619
  2. RISPERDAL [Concomitant]
     Indication: AUTISM
     Dosage: 1.5 MG, QD
  3. DAYTRANA [Suspect]
     Dosage: 15 MG, QD
     Route: 062
     Dates: start: 20080101, end: 20110619

REACTIONS (5)
  - PRODUCT QUALITY ISSUE [None]
  - WRONG TECHNIQUE IN DRUG USAGE PROCESS [None]
  - INCORRECT DRUG ADMINISTRATION DURATION [None]
  - OFF LABEL USE [None]
  - DISTURBANCE IN SOCIAL BEHAVIOUR [None]
